FAERS Safety Report 4396267-9 (Version None)
Quarter: 2004Q2

REPORT INFORMATION
  Report Type: 
  Country: None (occurrence: None)
  Receive Date: 20040621
  Receipt Date: 20031121
  Transmission Date: 20050107
  Serious: Yes (Death)
  Sender: FDA-Public Use
  Company Number: USA-2003-0010941

PATIENT
  Age: 33 Year
  Sex: Male
  Weight: 76.6 kg

DRUGS (13)
  1. OXYCONTIN [Suspect]
  2. HYDROCODONE BITARTRATE [Suspect]
  3. XANAX [Suspect]
  4. PHENOBARBITAL TAB [Suspect]
  5. PRIMIDONE [Suspect]
  6. LIDOCAINE [Suspect]
  7. VIOXX [Concomitant]
  8. INDERAL [Concomitant]
  9. VIDOPROFEN [Concomitant]
  10. BEXTRA [Concomitant]
  11. PERCOCET [Concomitant]
  12. EFFEXOR [Concomitant]
  13. CYCLOBENZAPRINE HCL [Concomitant]

REACTIONS (2)
  - ACCIDENTAL OVERDOSE [None]
  - MULTIPLE DRUG OVERDOSE [None]
